FAERS Safety Report 14777897 (Version 1)
Quarter: 2018Q2

REPORT INFORMATION
  Report Type: Spontaneous
  Country: US (occurrence: US)
  Receive Date: 20180419
  Receipt Date: 20180419
  Transmission Date: 20180711
  Serious: No
  Sender: FDA-Public Use
  Company Number: US-BAYER-2018-069205

PATIENT
  Sex: Female

DRUGS (2)
  1. PROBIOTICA [Concomitant]
     Active Substance: PROBIOTICS NOS
  2. MIRALAX [Suspect]
     Active Substance: POLYETHYLENE GLYCOL 3350
     Indication: GASTROINTESTINAL DISORDER
     Dosage: 1 DF, QD
     Route: 048
     Dates: start: 2016

REACTIONS (3)
  - Off label use [Unknown]
  - Product quality issue [Unknown]
  - Incorrect drug administration duration [Unknown]
